FAERS Safety Report 5870789-3 (Version None)
Quarter: 2008Q3

REPORT INFORMATION
  Report Type: 
  Country: None (occurrence: None)
  Receive Date: 20080904
  Receipt Date: 20080826
  Transmission Date: 20090109
  Serious: Yes (Other)
  Sender: FDA-Public Use
  Company Number: US-JNJFOC-20080806422

PATIENT
  Sex: Female
  Weight: 54.43 kg

DRUGS (7)
  1. FENTANYL TRANSDERMAL SYSTEM [Suspect]
     Indication: BACK PAIN
     Route: 062
  2. PREDNISONE [Suspect]
     Indication: SARCOIDOSIS
     Route: 048
  3. ACTIQ [Concomitant]
     Indication: BREAKTHROUGH PAIN
     Route: 048
  4. OXYCONTIN [Concomitant]
     Indication: PAIN
     Route: 048
  5. DIAZEPAM [Concomitant]
     Indication: MUSCLE SPASMS
     Route: 048
  6. PULMICORT-100 [Concomitant]
     Indication: SARCOIDOSIS
     Route: 055
  7. ALBUTEROL [Concomitant]
     Indication: SARCOIDOSIS
     Route: 055

REACTIONS (4)
  - ANKLE FRACTURE [None]
  - JOINT SWELLING [None]
  - WEIGHT INCREASED [None]
  - WRONG TECHNIQUE IN DRUG USAGE PROCESS [None]
